FAERS Safety Report 20327455 (Version 2)
Quarter: 2022Q1

REPORT INFORMATION
  Report Type: Report from Study
  Country: CO (occurrence: CO)
  Receive Date: 20220112
  Receipt Date: 20220126
  Transmission Date: 20220423
  Serious: Yes (Other)
  Sender: FDA-Public Use
  Company Number: CO-NOVARTISPH-NVSC2021CO271716

PATIENT
  Sex: Female
  Weight: 74.8 kg

DRUGS (3)
  1. KISQALI [Suspect]
     Active Substance: RIBOCICLIB
     Indication: Breast cancer metastatic
     Dosage: UNK, STOPPED IN AUG (YEAR UNSPECIFIED)
     Route: 048
  2. KISQALI [Suspect]
     Active Substance: RIBOCICLIB
     Dosage: 600 MG, QD
     Route: 048
     Dates: start: 20200717, end: 202011
  3. KISQALI [Suspect]
     Active Substance: RIBOCICLIB
     Dosage: 400 MG, QD
     Route: 048
     Dates: start: 202011, end: 202105

REACTIONS (9)
  - Breast cancer metastatic [Unknown]
  - Malignant neoplasm progression [Unknown]
  - Metastases to bone [Unknown]
  - Neutropenia [Unknown]
  - Mucosal inflammation [Not Recovered/Not Resolved]
  - Dermatitis [Not Recovered/Not Resolved]
  - Blood creatinine increased [Unknown]
  - Vomiting [Unknown]
  - Drug ineffective [Unknown]
